FAERS Safety Report 9100132 (Version 2)
Quarter: 2013Q1

REPORT INFORMATION
  Report Type: Spontaneous
  Country: US (occurrence: US)
  Receive Date: 20130215
  Receipt Date: 20130225
  Transmission Date: 20140127
  Serious: No
  Sender: FDA-Public Use
  Company Number: US-PFIZER INC-2013056200

PATIENT
  Age: 66 Year
  Sex: Female

DRUGS (5)
  1. NEURONTIN [Suspect]
     Dosage: UNK
  2. VERAPAMIL HCL [Suspect]
     Dosage: UNK
  3. MANDELAMINE [Suspect]
     Dosage: UNK
  4. TALWIN [Suspect]
     Dosage: UNK
  5. DEMEROL [Suspect]
     Dosage: UNK

REACTIONS (2)
  - Drug hypersensitivity [Unknown]
  - Cough [Unknown]
